FAERS Safety Report 20143986 (Version 1)
Quarter: 2021Q4

REPORT INFORMATION
  Report Type: Spontaneous
  Country: US (occurrence: US)
  Receive Date: 20211203
  Receipt Date: 20211203
  Transmission Date: 20220303
  Serious: No
  Sender: FDA-Public Use
  Company Number: US-BAUSCH-BL-2021-035405

PATIENT
  Sex: Female

DRUGS (1)
  1. BEPREVE [Suspect]
     Active Substance: BEPOTASTINE BESILATE
     Indication: Product used for unknown indication
     Route: 065

REACTIONS (3)
  - Expired product administered [Unknown]
  - Inability to afford medication [Unknown]
  - No adverse event [Unknown]
